FAERS Safety Report 9819696 (Version 2)
Quarter: 2014Q1

REPORT INFORMATION
  Report Type: Spontaneous
  Country: US (occurrence: US)
  Receive Date: 20140115
  Receipt Date: 20140115
  Transmission Date: 20141002
  Serious: No
  Sender: FDA-Public Use
  Company Number: US-ALLERGAN-1308937US

PATIENT
  Sex: Female

DRUGS (3)
  1. PRED MILD [Suspect]
     Indication: EYE INFLAMMATION
     Dosage: 1 GTT, QD
     Route: 047
     Dates: start: 20130520, end: 20130524
  2. TIMOPTIC (GENERIC) [Concomitant]
     Indication: GLAUCOMA
     Dosage: UNK
     Route: 047
  3. XALATAN (GENERIC) [Concomitant]
     Indication: GLAUCOMA
     Dosage: UNK

REACTIONS (3)
  - Erythema [Recovering/Resolving]
  - Ocular hyperaemia [Recovered/Resolved]
  - Rash [Recovering/Resolving]
